FAERS Safety Report 10058587 (Version 1)
Quarter: 2014Q2

REPORT INFORMATION
  Report Type: Spontaneous
  Country: US (occurrence: US)
  Receive Date: 20140404
  Receipt Date: 20140404
  Transmission Date: 20141212
  Serious: No
  Sender: FDA-Public Use
  Company Number: US-MALLINCKRODT-T201304252

PATIENT
  Age: 65 Year
  Sex: Male

DRUGS (3)
  1. RESTORIL [Suspect]
     Indication: INSOMNIA
     Dosage: 15 MG, QD
     Route: 048
     Dates: start: 201306
  2. RESTORIL [Suspect]
     Dosage: TWO 15 MG TABLETS QD
  3. ALCOHOL [Suspect]

REACTIONS (4)
  - Muscle twitching [Not Recovered/Not Resolved]
  - Clumsiness [Not Recovered/Not Resolved]
  - Extra dose administered [Not Recovered/Not Resolved]
  - Dizziness [Not Recovered/Not Resolved]
